FAERS Safety Report 7044126-5 (Version None)
Quarter: 2010Q4

REPORT INFORMATION
  Report Type: 
  Country: None (occurrence: None)
  Receive Date: 20101013
  Receipt Date: 20101006
  Transmission Date: 20110411
  Serious: Yes (Hospitalization, Other)
  Sender: FDA-Public Use
  Company Number: US-PFIZER INC-2010127576

PATIENT
  Sex: Female

DRUGS (9)
  1. LIPITOR [Suspect]
     Dosage: UNK
  2. DETROL [Suspect]
     Dosage: UNK
  3. CLONAZEPAM [Suspect]
     Dosage: UNK
  4. CELEXA [Suspect]
     Dosage: UNK
  5. SEROQUEL [Suspect]
     Dosage: UNK
  6. SYNTHROID [Suspect]
     Dosage: UNK
  7. GLYBURIDE [Suspect]
     Dosage: UNK
  8. OXCARBAZEPINE [Suspect]
     Dosage: UNK
  9. ZOLPIDEM [Suspect]
     Dosage: UNK

REACTIONS (2)
  - CONVULSION [None]
  - DRUG INTERACTION [None]
